FAERS Safety Report 7163880-5 (Version None)
Quarter: 2010Q4

REPORT INFORMATION
  Report Type: 
  Country: None (occurrence: None)
  Receive Date: 20101215
  Receipt Date: 20100629
  Transmission Date: 20110411
  Serious: Yes (Hospitalization, Other)
  Sender: FDA-Public Use
  Company Number: NO-PFIZER INC-2010081489

PATIENT
  Age: 87 Year
  Sex: Female

DRUGS (9)
  1. LYRICA [Suspect]
     Indication: NEURALGIA
     Route: 048
     Dates: start: 20100616, end: 20100621
  2. FENTANYL [Interacting]
     Indication: CANCER PAIN
     Dosage: 50 MICROGRAM PR. HOUR
     Route: 062
     Dates: start: 20100604
  3. AMLODIPINE [Concomitant]
     Indication: HYPERTENSION
  4. ONDANSETRON [Concomitant]
     Indication: NAUSEA
  5. GLUCOSAMINE [Concomitant]
     Indication: MUSCULOSKELETAL PAIN
  6. FURIX [Concomitant]
     Indication: HYPERTENSION
  7. PARACET [Concomitant]
     Indication: PAIN
  8. ZOPICLONE [Concomitant]
     Indication: SLEEP DISORDER
  9. LEVOTHYROXINE SODIUM [Concomitant]
     Indication: THYROID DISORDER

REACTIONS (3)
  - CONFUSIONAL STATE [None]
  - DRUG INTERACTION [None]
  - SEDATION [None]
